FAERS Safety Report 7967884-1 (Version None)
Quarter: 2011Q4

REPORT INFORMATION
  Report Type: 
  Country: None (occurrence: None)
  Receive Date: 20111209
  Receipt Date: 20111201
  Transmission Date: 20120403
  Serious: Yes (Hospitalization, Disabling, Other)
  Sender: FDA-Public Use
  Company Number: US-PURDUE-USA-2011-0079118

PATIENT
  Age: 26 Year
  Sex: Male

DRUGS (1)
  1. OXYCONTIN [Suspect]
     Indication: BACK PAIN

REACTIONS (18)
  - BRAIN INJURY [None]
  - IMMOBILE [None]
  - RESPIRATORY ARREST [None]
  - CYANOSIS [None]
  - CARDIAC ARREST [None]
  - DYSPHAGIA [None]
  - COMA [None]
  - OVERDOSE [None]
  - MUSCULAR WEAKNESS [None]
  - MUSCLE CONTRACTURE [None]
  - LUNG INFECTION [None]
  - BLEPHAROSPASM [None]
  - MUSCLE TWITCHING [None]
  - UNRESPONSIVE TO STIMULI [None]
  - APHASIA [None]
  - DEPRESSED LEVEL OF CONSCIOUSNESS [None]
  - VOMITING [None]
  - PALLOR [None]
